FAERS Safety Report 4768420-3 (Version None)
Quarter: 2005Q3

REPORT INFORMATION
  Report Type: 
  Country: None (occurrence: None)
  Receive Date: 20050906
  Receipt Date: 20050207
  Transmission Date: 20060218
  Serious: No
  Sender: FDA-Public Use
  Company Number: 2005-BP-00324BP

PATIENT
  Age: 71 Year
  Sex: Female

DRUGS (12)
  1. SPIRIVA [Suspect]
     Indication: CHRONIC OBSTRUCTIVE PULMONARY DISEASE
     Dosage: 18 MCG (18 MCG, QD), IH
     Route: 055
     Dates: start: 20041129
  2. SPIRIVA [Suspect]
     Indication: EMPHYSEMA
  3. SPIRIVA [Suspect]
  4. AEROBID [Concomitant]
  5. MAXAIR [Concomitant]
  6. PREVACID [Concomitant]
  7. PREMARIN [Concomitant]
  8. CENTRUM SILVER (CENTRUM SILVER) [Concomitant]
  9. CALTRATE CALCIUM [Concomitant]
  10. DAYPRO [Concomitant]
  11. TYLENOL [Concomitant]
  12. HORMONE REPLACEMENT THERAPY [Concomitant]

REACTIONS (1)
  - DRUG EFFECT DECREASED [None]
